FAERS Safety Report 5762755-3 (Version None)
Quarter: 2008Q2

REPORT INFORMATION
  Report Type: 
  Country: None (occurrence: None)
  Receive Date: 20080609
  Receipt Date: 20080604
  Transmission Date: 20081010
  Serious: Yes (Other)
  Sender: FDA-Public Use
  Company Number: GB-ASTRAZENECA-2008GB01033

PATIENT
  Age: 68 Year
  Sex: Female
  Weight: 66.2 kg

DRUGS (10)
  1. ROSUVASTATIN [Suspect]
     Indication: BLOOD CHOLESTEROL INCREASED
     Dosage: 10 MG
     Route: 048
     Dates: start: 20080307
  2. ROSUVASTATIN [Suspect]
     Indication: HYPERTENSION
     Dosage: 10 MG
     Route: 048
     Dates: start: 20080307
  3. ROSUVASTATIN [Suspect]
     Indication: PERIPHERAL VASCULAR DISORDER
     Dosage: 10 MG
     Route: 048
     Dates: start: 20080307
  4. ROSUVASTATIN [Suspect]
     Dosage: 20 MG
     Route: 048
     Dates: end: 20080326
  5. ROSUVASTATIN [Suspect]
     Dosage: 20 MG
     Route: 048
     Dates: end: 20080326
  6. ROSUVASTATIN [Suspect]
     Dosage: 20 MG
     Route: 048
     Dates: end: 20080326
  7. ASPIRIN [Concomitant]
     Dosage: 75 MG
     Dates: start: 20070622
  8. ATENOLOL [Concomitant]
     Dosage: 50 MG
     Dates: start: 19960101
  9. FELODIPINE [Concomitant]
     Dosage: 5 MG
     Dates: start: 20060213
  10. RAMIPRIL [Concomitant]
     Dosage: 10 MG
     Dates: start: 20060718

REACTIONS (3)
  - ALANINE AMINOTRANSFERASE INCREASED [None]
  - LIVER FUNCTION TEST ABNORMAL [None]
  - SERUM FERRITIN INCREASED [None]
